FAERS Safety Report 4612332-2 (Version None)
Quarter: 2005Q1

REPORT INFORMATION
  Report Type: 
  Country: None (occurrence: None)
  Receive Date: 20050316
  Receipt Date: 20050224
  Transmission Date: 20050727
  Serious: Yes (Hospitalization)
  Sender: FDA-Public Use
  Company Number: USA050291817

PATIENT
  Age: 62 Year
  Sex: Female

DRUGS (3)
  1. PROZAC [Suspect]
     Indication: MENOPAUSE
     Dosage: 20 MG/2 DAY
  2. DURAGESIC (FENTANYL) [Concomitant]
  3. ATORVASTATIN CALCIUM [Concomitant]

REACTIONS (8)
  - ARRHYTHMIA [None]
  - BURNING SENSATION [None]
  - CARDIAC DISORDER [None]
  - FEELING ABNORMAL [None]
  - GASTROINTESTINAL DISORDER [None]
  - HYPERHIDROSIS [None]
  - INSOMNIA [None]
  - NERVOUSNESS [None]
